FAERS Safety Report 10296471 (Version 1)
Quarter: 2014Q3

REPORT INFORMATION
  Report Type: Spontaneous
  Country: US (occurrence: None)
  Receive Date: 20140708
  Receipt Date: 20140708
  Transmission Date: 20150326
  Serious: Yes (Hospitalization, Disabling, Other)
  Sender: FDA-Public Use
  Company Number: None

PATIENT
  Age: 64 Year
  Sex: Female
  Weight: 69.4 kg

DRUGS (12)
  1. SIMVASTATIN. [Concomitant]
     Active Substance: SIMVASTATIN
  2. DICYCLOMINE [Concomitant]
     Active Substance: DICYCLOMINE HYDROCHLORIDE
  3. ASPIRIN. [Concomitant]
     Active Substance: ASPIRIN
  4. ALPRAZOLAM. [Concomitant]
     Active Substance: ALPRAZOLAM
  5. LEVOTHYROXIN [Concomitant]
     Active Substance: LEVOTHYROXINE
  6. TRAMADOL [Concomitant]
     Active Substance: TRAMADOL
  7. WOMEN^S ONE-A-DAY VITAMIN [Concomitant]
  8. TEA TREE OIL [Concomitant]
     Active Substance: TEA TREE OIL
  9. VIIBRYD [Suspect]
     Active Substance: VILAZODONE HYDROCHLORIDE
     Indication: DEPRESSION
     Dosage: 20 MG 1 PILL ONCE 7 PM BY MOUTH
     Route: 048
     Dates: start: 20140305, end: 20140319
  10. ENSURE [Concomitant]
     Active Substance: AMINO ACIDS\DEXTROSE\ELECTROLYTES NOS\SOYBEAN OIL\VITAMINS
  11. FLUVOXAMINE [Concomitant]
     Active Substance: FLUVOXAMINE
  12. LACTAID [Concomitant]
     Active Substance: LACTASE

REACTIONS (8)
  - Aphagia [None]
  - Nausea [None]
  - Insomnia [None]
  - Adrenal disorder [None]
  - Drug ineffective [None]
  - Abdominal pain [None]
  - Anxiety [None]
  - Constipation [None]

NARRATIVE: CASE EVENT DATE: 20140305
